FAERS Safety Report 5717399-6 (Version None)
Quarter: 2008Q2

REPORT INFORMATION
  Report Type: 
  Country: None (occurrence: None)
  Receive Date: 20080424
  Receipt Date: 20080424
  Transmission Date: 20081010
  Serious: Yes (Other)
  Sender: FDA-Public Use
  Company Number: None

PATIENT
  Age: 9 Year
  Sex: Female
  Weight: 24.9478 kg

DRUGS (1)
  1. SINGULAIR [Suspect]
     Indication: ASTHMA
     Dosage: 1 5MG CHEWABLE PILL 1 TABLET DAILY PO
     Route: 048
     Dates: start: 20071001, end: 20080328

REACTIONS (3)
  - ANXIETY [None]
  - DEPRESSION [None]
  - MOOD SWINGS [None]
